FAERS Safety Report 5802837-0 (Version None)
Quarter: 2008Q3

REPORT INFORMATION
  Report Type: 
  Country: None (occurrence: None)
  Receive Date: 20080703
  Receipt Date: 20080624
  Transmission Date: 20090109
  Serious: Yes (Hospitalization)
  Sender: FDA-Public Use
  Company Number: 87175

PATIENT
  Sex: Female

DRUGS (1)
  1. KETOCONAZOLE [Suspect]
     Indication: GENITAL DISCHARGE

REACTIONS (2)
  - EOSINOPHILIA [None]
  - HEPATITIS ACUTE [None]
